FAERS Safety Report 25396374 (Version 2)
Quarter: 2025Q2

REPORT INFORMATION
  Report Type: Spontaneous
  Country: US (occurrence: US)
  Receive Date: 20250604
  Receipt Date: 20250610
  Transmission Date: 20250717
  Serious: No
  Sender: Kenvue
  Company Number: US-KENVUE-20250510910

PATIENT
  Age: 36 Year
  Sex: Female

DRUGS (7)
  1. TYLENOL [Suspect]
     Active Substance: ACETAMINOPHEN
     Indication: Pain in extremity
     Route: 065
     Dates: start: 202504
  2. TYLENOL [Suspect]
     Active Substance: ACETAMINOPHEN
     Indication: Neuralgia
  3. ORENITRAM [Concomitant]
     Active Substance: TREPROSTINIL
     Indication: Pulmonary arterial hypertension
     Dosage: 6.25 MG (1 TABLET EACH OF 1 MG, 0.25 MG AND 5 MG)
     Route: 048
  4. ORENITRAM [Concomitant]
     Active Substance: TREPROSTINIL
     Dosage: 6.375 MILLIGRAM, THRICE A DAY
     Route: 048
     Dates: start: 202504
  5. ORENITRAM [Concomitant]
     Active Substance: TREPROSTINIL
     Dosage: 6.625 MILLIGRAM, THRICE A DAY
     Route: 048
  6. ORENITRAM [Concomitant]
     Active Substance: TREPROSTINIL
     Route: 048
     Dates: start: 202310
  7. ADEMPAS [Concomitant]
     Active Substance: RIOCIGUAT
     Indication: Product used for unknown indication
     Route: 065

REACTIONS (1)
  - Drug ineffective [Unknown]

NARRATIVE: CASE EVENT DATE: 20250401
